FAERS Safety Report 23093399 (Version 1)
Quarter: 2023Q4

REPORT INFORMATION
  Report Type: Spontaneous
  Country: US (occurrence: US)
  Receive Date: 20231022
  Receipt Date: 20231022
  Transmission Date: 20240109
  Serious: Yes (Other)
  Sender: FDA-Public Use
  Company Number: US-JNJFOC-20160422382

PATIENT
  Age: 1 Decade
  Sex: Male

DRUGS (11)
  1. RISPERDAL [Suspect]
     Active Substance: RISPERIDONE
     Indication: Behaviour disorder
     Dosage: IN VARYING FREQUENCIES OF IN THE MORNING OR IN THE MORNING AND IN THE EVENING
     Route: 048
     Dates: start: 200301, end: 200512
  2. RISPERDAL [Suspect]
     Active Substance: RISPERIDONE
     Indication: Emotional disorder
  3. RISPERDAL CONSTA [Suspect]
     Active Substance: RISPERIDONE
     Indication: Product used for unknown indication
     Route: 030
     Dates: start: 200301, end: 200512
  4. RISPERDAL CONSTA [Suspect]
     Active Substance: RISPERIDONE
  5. RISPERDAL CONSTA [Suspect]
     Active Substance: RISPERIDONE
  6. RISPERDAL CONSTA [Suspect]
     Active Substance: RISPERIDONE
  7. INVEGA [Suspect]
     Active Substance: PALIPERIDONE
     Indication: Product used for unknown indication
     Route: 048
     Dates: start: 200301, end: 200512
  8. INVEGA SUSTENNA [Suspect]
     Active Substance: PALIPERIDONE PALMITATE
     Indication: Product used for unknown indication
     Route: 030
     Dates: start: 200301, end: 200512
  9. INVEGA SUSTENNA [Suspect]
     Active Substance: PALIPERIDONE PALMITATE
  10. INVEGA SUSTENNA [Suspect]
     Active Substance: PALIPERIDONE PALMITATE
  11. RISPERIDONE [Suspect]
     Active Substance: RISPERIDONE
     Indication: Product used for unknown indication
     Route: 048
     Dates: start: 200301, end: 200512

REACTIONS (4)
  - Gynaecomastia [Not Recovered/Not Resolved]
  - Galactorrhoea [Unknown]
  - Weight increased [Unknown]
  - Extra dose administered [Unknown]

NARRATIVE: CASE EVENT DATE: 20030101
